FAERS Safety Report 14643391 (Version 7)
Quarter: 2018Q2

REPORT INFORMATION
  Report Type: Report from Study
  Country: US (occurrence: US)
  Receive Date: 20180315
  Receipt Date: 20180605
  Transmission Date: 20180711
  Serious: Yes (Other)
  Sender: FDA-Public Use
  Company Number: US-PFIZER INC-2018066075

PATIENT
  Age: 46 Year
  Sex: Female

DRUGS (3)
  1. IBRANCE [Suspect]
     Active Substance: PALBOCICLIB
     Dosage: 100 MG, ONCE A DAY
     Route: 048
     Dates: start: 20180205, end: 20180318
  2. IBRANCE [Suspect]
     Active Substance: PALBOCICLIB
     Indication: BREAST CANCER METASTATIC
     Dosage: 125 MG, ONCE A DAY
     Route: 048
     Dates: start: 20180108, end: 20180129
  3. IBRANCE [Suspect]
     Active Substance: PALBOCICLIB
     Dosage: 100 MG, 1X/DAY
     Route: 048
     Dates: start: 20180401

REACTIONS (19)
  - Drug dose omission [Unknown]
  - Pyrexia [Recovered/Resolved]
  - Headache [Recovered/Resolved]
  - Fatigue [Not Recovered/Not Resolved]
  - Oropharyngeal pain [Recovered/Resolved]
  - White blood cell count decreased [Not Recovered/Not Resolved]
  - Chills [Recovered/Resolved]
  - Chest discomfort [Unknown]
  - Neck pain [Unknown]
  - Bone marrow failure [Recovering/Resolving]
  - Dry skin [Unknown]
  - Platelet count decreased [Unknown]
  - Cough [Recovered/Resolved]
  - Pain [Recovered/Resolved]
  - Dry mouth [Unknown]
  - Arthralgia [Unknown]
  - Pneumonia [Unknown]
  - Oral pain [Recovered/Resolved]
  - Glossodynia [Unknown]

NARRATIVE: CASE EVENT DATE: 2018
